FAERS Safety Report 9553805 (Version 1)
Quarter: 2013Q3

REPORT INFORMATION
  Report Type: Spontaneous
  Country: FR (occurrence: FR)
  Receive Date: 20130925
  Receipt Date: 20130925
  Transmission Date: 20140515
  Serious: Yes (Life-Threatening)
  Sender: FDA-Public Use
  Company Number: FR-SANOFI-AVENTIS-2013SA093654

PATIENT
  Age: 52 Year
  Sex: Male

DRUGS (23)
  1. THYMOGLOBULINE [Suspect]
     Indication: IMMUNOSUPPRESSION
     Route: 042
     Dates: start: 20130820, end: 20130821
  2. FLUDARABINE [Concomitant]
     Indication: IMMUNOSUPPRESSION
     Dates: start: 20130817, end: 20130821
  3. BUSULFAN [Concomitant]
     Indication: IMMUNOSUPPRESSION
     Dates: start: 20130818, end: 20130818
  4. RAPAMUNE [Concomitant]
     Indication: IMMUNOSUPPRESSION
     Dates: start: 20130819
  5. CELLCEPT [Concomitant]
     Indication: IMMUNOSUPPRESSION
     Dates: start: 20130819
  6. ONDANSETRON [Concomitant]
     Indication: PREMEDICATION
     Dates: start: 20130817
  7. RIVOTRIL [Concomitant]
     Indication: PREMEDICATION
     Dates: start: 20130818
  8. LOXEN [Concomitant]
  9. EUPRESSYL [Concomitant]
  10. HYPERIUM [Concomitant]
  11. TAHOR [Concomitant]
  12. APROVEL [Concomitant]
  13. DIFFU K [Concomitant]
  14. BISOPROLOL [Concomitant]
  15. STILNOX [Concomitant]
  16. INEXIUM [Concomitant]
  17. CORTANCYL [Concomitant]
  18. CALCIUM FOLINATE [Concomitant]
  19. ZOVIRAX [Concomitant]
  20. TRIFLUCAN [Concomitant]
  21. UNFRACTIONATED HEPARIN [Concomitant]
  22. COLIGENTA [Concomitant]
  23. FLAGYL [Concomitant]

REACTIONS (3)
  - Hepatocellular injury [Recovering/Resolving]
  - Hepatic failure [Recovered/Resolved]
  - Cholestasis [Recovering/Resolving]
